FAERS Safety Report 21634484 (Version 2)
Quarter: 2023Q1

REPORT INFORMATION
  Report Type: Spontaneous
  Country: US (occurrence: US)
  Receive Date: 20221123
  Receipt Date: 20230127
  Transmission Date: 20230418
  Serious: No
  Sender: FDA-Public Use
  Company Number: US-BRISTOL-MYERS SQUIBB COMPANY-2022-142270

PATIENT
  Age: 82 Year
  Sex: Female
  Weight: 69.4 kg

DRUGS (1)
  1. REVLIMID [Suspect]
     Active Substance: LENALIDOMIDE
     Indication: Plasma cell myeloma
     Dosage: 1 EVERY OTHER DAY ON DAYS 1-14, THEN 7 ?DAYS OFF EVERY 21 DAYS
     Route: 048

REACTIONS (5)
  - Joint swelling [Recovered/Resolved]
  - Infection [Recovered/Resolved]
  - Off label use [Recovered/Resolved]
  - Pain in extremity [Not Recovered/Not Resolved]
  - Somnolence [Not Recovered/Not Resolved]
